FAERS Safety Report 8208919 (Version 3)
Quarter: 2013Q4

REPORT INFORMATION
  Report Type: Spontaneous
  Country: JP (occurrence: JP)
  Receive Date: 20111028
  Receipt Date: 20131218
  Transmission Date: 20140711
  Serious: Yes (Hospitalization, Other)
  Sender: FDA-Public Use
  Company Number: JP-ROCHE-1002176

PATIENT
  Age: 43 Year
  Sex: Female

DRUGS (5)
  1. ACTEMRA [Suspect]
     Indication: RHEUMATOID ARTHRITIS
     Route: 041
     Dates: start: 20101116, end: 20101221
  2. PREDONINE [Concomitant]
     Indication: RHEUMATOID ARTHRITIS
     Route: 048
     Dates: start: 200908, end: 20110225
  3. MARZULENE-S [Concomitant]
     Route: 048
  4. GANATON [Concomitant]
     Route: 048
  5. MOBIC [Concomitant]
     Route: 048

REACTIONS (9)
  - Neutrophilic dermatosis [Recovered/Resolved]
  - Infected skin ulcer [Recovered/Resolved]
  - Full blood count decreased [Recovered/Resolved]
  - Alopecia [Recovered/Resolved]
  - Systemic lupus erythematosus [Recovered/Resolved]
  - Lymphadenopathy [Recovered/Resolved]
  - Malaise [Recovered/Resolved]
  - Pyrexia [Unknown]
  - Malaise [Unknown]
